FAERS Safety Report 7080743-4 (Version None)
Quarter: 2010Q4

REPORT INFORMATION
  Report Type: 
  Country: None (occurrence: None)
  Receive Date: 20101103
  Receipt Date: 20101027
  Transmission Date: 20110411
  Serious: Yes (Hospitalization)
  Sender: FDA-Public Use
  Company Number: JP-JNJFOC-20101005521

PATIENT
  Age: 65 Year
  Sex: Female

DRUGS (19)
  1. DORIPENEM MONOHYDRATE [Suspect]
     Indication: CELLULITIS
     Route: 041
  2. DORIPENEM MONOHYDRATE [Suspect]
     Route: 041
  3. TAKEPRON [Concomitant]
     Route: 065
  4. MADOPAR [Concomitant]
     Route: 065
  5. MAGNESIUM OXIDE [Concomitant]
     Indication: PRODUCT USED FOR UNKNOWN INDICATION
     Route: 065
  6. SODIUM CHLORIDE [Concomitant]
     Route: 065
  7. ACETAMINOPHEN [Concomitant]
     Route: 065
  8. LAMISIL [Concomitant]
     Route: 065
  9. ENSURE [Concomitant]
     Route: 051
  10. MILTAX [Concomitant]
     Route: 065
  11. MOHRUS TAPE [Concomitant]
     Route: 065
  12. NOVOLIN R [Concomitant]
     Route: 058
  13. INSULIN [Concomitant]
     Route: 065
  14. LOXONIN [Concomitant]
     Indication: PAIN
     Route: 065
  15. UNKNOWN MEDICATION [Concomitant]
     Route: 065
  16. GENTACIN [Concomitant]
     Route: 065
  17. AKINETON [Concomitant]
     Route: 065
  18. SERENACE [Concomitant]
     Route: 065
  19. SELENICA-R [Concomitant]
     Route: 065

REACTIONS (1)
  - PANCYTOPENIA [None]
